FAERS Safety Report 9994233 (Version 1)
Quarter: 2014Q1

REPORT INFORMATION
  Report Type: Spontaneous
  Country: US (occurrence: US)
  Receive Date: 20140310
  Receipt Date: 20140310
  Transmission Date: 20141002
  Serious: No
  Sender: FDA-Public Use
  Company Number: US-BAXTER-2014BAX011117

PATIENT
  Sex: 0

DRUGS (1)
  1. DIANEAL LOW CALCIUM [Suspect]
     Indication: PERITONEAL DIALYSIS
     Route: 033

REACTIONS (5)
  - Dry mouth [Unknown]
  - Abdominal pain upper [Unknown]
  - Abdominal distension [Unknown]
  - Dyspnoea [Unknown]
  - Dementia [Unknown]
